FAERS Safety Report 10173078 (Version 2)
Quarter: 2014Q2

REPORT INFORMATION
  Report Type: Spontaneous
  Country: US (occurrence: US)
  Receive Date: 20140515
  Receipt Date: 20140515
  Transmission Date: 20141212
  Serious: Yes (Other)
  Sender: FDA-Public Use
  Company Number: US-JNJFOC-20131209740

PATIENT
  Age: 52 Year
  Sex: Female
  Weight: 57.6 kg

DRUGS (22)
  1. MOTRIN [Suspect]
     Route: 065
  2. MOTRIN [Suspect]
     Indication: PAIN
     Route: 065
  3. PERCOCET [Suspect]
     Indication: NEURALGIA
     Route: 065
  4. PERCOCET [Suspect]
     Indication: NEURALGIA
     Route: 065
  5. PERCOCET [Suspect]
     Indication: PAIN IN EXTREMITY
     Route: 065
  6. PERCOCET [Suspect]
     Indication: PAIN IN EXTREMITY
     Route: 065
  7. PERCOCET [Suspect]
     Indication: ARTHRALGIA
     Route: 065
  8. PERCOCET [Suspect]
     Indication: ARTHRALGIA
     Route: 065
  9. PERCOCET [Suspect]
     Indication: NECK PAIN
     Route: 065
  10. PERCOCET [Suspect]
     Indication: NECK PAIN
     Route: 065
  11. PERCOCET [Suspect]
     Indication: PAIN
     Route: 065
  12. PERCOCET [Suspect]
     Indication: PAIN
     Route: 065
  13. LYRICA [Suspect]
     Indication: VULVOVAGINAL PAIN
     Route: 065
  14. LYRICA [Suspect]
     Indication: VULVOVAGINAL PAIN
     Route: 065
     Dates: end: 20131014
  15. LYRICA [Suspect]
     Indication: PAIN IN EXTREMITY
     Route: 065
     Dates: end: 20131014
  16. LYRICA [Suspect]
     Indication: PAIN IN EXTREMITY
     Route: 065
  17. LYRICA [Suspect]
     Indication: NEURALGIA
     Route: 065
  18. LYRICA [Suspect]
     Indication: NEURALGIA
     Route: 065
     Dates: end: 20131014
  19. LYRICA [Suspect]
     Indication: FIBROMYALGIA
     Route: 065
     Dates: end: 20131014
  20. LYRICA [Suspect]
     Indication: FIBROMYALGIA
     Route: 065
  21. VITAMIN [Concomitant]
     Indication: PRODUCT USED FOR UNKNOWN INDICATION
     Route: 065
  22. UNSPECIFIED HERBAL SUPPLEMENTS [Concomitant]
     Indication: PRODUCT USED FOR UNKNOWN INDICATION
     Route: 065

REACTIONS (6)
  - Renal disorder [Unknown]
  - Weight decreased [Unknown]
  - Weight increased [Unknown]
  - Glucose tolerance impaired [Unknown]
  - Off label use [Unknown]
  - Drug ineffective [Unknown]
